FAERS Safety Report 18823129 (Version 1)
Quarter: 2021Q1

REPORT INFORMATION
  Report Type: Spontaneous
  Country: US (occurrence: US)
  Receive Date: 20210202
  Receipt Date: 20210202
  Transmission Date: 20210419
  Serious: No
  Sender: FDA-Public Use
  Company Number: US-ASTRAZENECA-2021A022136

PATIENT
  Age: 79 Year
  Sex: Female

DRUGS (1)
  1. PRILOSEC [Suspect]
     Active Substance: OMEPRAZOLE MAGNESIUM
     Route: 065

REACTIONS (7)
  - Pain [Unknown]
  - Oropharyngeal pain [Unknown]
  - Oesophageal pain [Unknown]
  - Gastrooesophageal reflux disease [Unknown]
  - Dysphonia [Unknown]
  - Abdominal pain [Recovered/Resolved]
  - Diarrhoea [Unknown]
